FAERS Safety Report 5827814-5 (Version None)
Quarter: 2008Q3

REPORT INFORMATION
  Report Type: 
  Country: None (occurrence: None)
  Receive Date: 20080730
  Receipt Date: 20080728
  Transmission Date: 20090109
  Serious: Yes (Death, Hospitalization, Other)
  Sender: FDA-Public Use
  Company Number: JP-MERCK-0807USA02353

PATIENT
  Age: 75 Year
  Sex: Female

DRUGS (10)
  1. DECADRON [Suspect]
     Indication: DIFFUSE LARGE B-CELL LYMPHOMA RECURRENT
     Route: 048
  2. DECADRON [Suspect]
     Route: 048
  3. DECADRON [Suspect]
     Route: 048
  4. DECADRON [Suspect]
     Route: 048
  5. DECADRON [Suspect]
     Route: 048
  6. DECADRON [Suspect]
     Route: 048
  7. DECADRON [Suspect]
     Route: 048
  8. METHOTREXATE [Suspect]
     Indication: DIFFUSE LARGE B-CELL LYMPHOMA RECURRENT
     Route: 065
  9. METHOTREXATE [Suspect]
     Route: 051
  10. PROCARBAZINE HYDROCHLORIDE [Suspect]
     Indication: DIFFUSE LARGE B-CELL LYMPHOMA RECURRENT
     Route: 048

REACTIONS (5)
  - CONFUSIONAL STATE [None]
  - DIFFUSE LARGE B-CELL LYMPHOMA [None]
  - ENCEPHALITIS CYTOMEGALOVIRUS [None]
  - ENCEPHALITIS HERPES [None]
  - PNEUMONIA ASPIRATION [None]
